FAERS Safety Report 19466160 (Version 2)
Quarter: 2021Q3

REPORT INFORMATION
  Report Type: Spontaneous
  Country: PR (occurrence: PR)
  Receive Date: 20210624
  Receipt Date: 20210804
  Transmission Date: 20211014
  Serious: Yes (Death)
  Sender: FDA-Public Use
  Company Number: PR-BAXTER-2021BAX017230

PATIENT
  Age: 81 Year
  Sex: Female

DRUGS (4)
  1. 0.9% SODIUM CHLORIDE [Suspect]
     Active Substance: SODIUM CHLORIDE
     Dosage: 80 ML PER HOUR
     Route: 042
     Dates: start: 20210427
  2. 0.9% SODIUM CHLORIDE [Suspect]
     Active Substance: SODIUM CHLORIDE
     Indication: MEDICATION DILUTION
     Dosage: 125 MG DILTIAZEM+ 100 ML SODIUM CHLORIDE 0.9% AT 5 ML PER HOUR
     Route: 042
     Dates: start: 20210427
  3. DILTIAZEM. [Suspect]
     Active Substance: DILTIAZEM
     Indication: ATRIAL FIBRILLATION
     Dosage: 125 MG + 100 ML SODIUM CHLORIDE 0.9% AT 5 ML PER HOUR
     Route: 042
     Dates: start: 20210427
  4. DILTIAZEM. [Suspect]
     Active Substance: DILTIAZEM
     Indication: SINUS TACHYCARDIA

REACTIONS (3)
  - Death [Fatal]
  - Accidental overdose [Fatal]
  - Product administration error [Unknown]

NARRATIVE: CASE EVENT DATE: 20210427
